FAERS Safety Report 10247415 (Version 2)
Quarter: 2014Q2

REPORT INFORMATION
  Report Type: Spontaneous
  Country: ES (occurrence: None)
  Receive Date: 20140617
  Receipt Date: 20140623
  Transmission Date: 20141212
  Serious: Yes (Other)
  Sender: FDA-Public Use
  Company Number: E2B_7298723

PATIENT
  Age: 39 Year
  Sex: Female

DRUGS (1)
  1. EUTIROX (LEVOTHYROXINE SODIUM) (LEVOTHYROXINE SODIUM) [Suspect]
     Indication: HYPOTHYROIDISM
     Dosage: 75 MCG (75 MCG,4 IN 1 WK), ORAL
     Route: 048
     Dates: start: 20090401

REACTIONS (4)
  - Thyroid function test abnormal [None]
  - Medication error [None]
  - Fatigue [None]
  - Incorrect dose administered [None]
